FAERS Safety Report 4884589-4 (Version None)
Quarter: 2005Q4

REPORT INFORMATION
  Report Type: 
  Country: None (occurrence: None)
  Receive Date: 20051201
  Receipt Date: 20050831
  Transmission Date: 20060501
  Serious: No
  Sender: FDA-Public Use
  Company Number: 2005PV001722

PATIENT
  Age: 63 Year
  Sex: Female
  Weight: 81.6475 kg

DRUGS (7)
  1. BYETTA [Suspect]
     Indication: DIABETES MELLITUS NON-INSULIN-DEPENDENT
     Dosage: 5 MCG; 10 MCG : BID; SC
     Route: 058
     Dates: start: 20050717, end: 20050818
  2. BYETTA [Suspect]
     Indication: DIABETES MELLITUS NON-INSULIN-DEPENDENT
     Dosage: 5 MCG; 10 MCG : BID; SC
     Route: 058
     Dates: start: 20050819
  3. AVANDIA [Concomitant]
  4. LISINOPRIL [Concomitant]
  5. HYDROCHLOROTHIAZIDE [Concomitant]
  6. ASPIRIN [Concomitant]
  7. SOMA [Concomitant]

REACTIONS (3)
  - ERUCTATION [None]
  - HEADACHE [None]
  - NAUSEA [None]
